FAERS Safety Report 9143482 (Version 2)
Quarter: 2013Q1

REPORT INFORMATION
  Report Type: Spontaneous
  Country: VE (occurrence: VE)
  Receive Date: 20130306
  Receipt Date: 20130319
  Transmission Date: 20140127
  Serious: Yes (Death, Hospitalization)
  Sender: FDA-Public Use
  Company Number: VE-PFIZER INC-2013077849

PATIENT
  Age: 85 Year
  Sex: Male

DRUGS (3)
  1. LIPITOR [Suspect]
     Dosage: 40 MG, 1X/DAY
     Route: 048
     Dates: start: 20130131
  2. HYZAAR [Concomitant]
     Indication: HYPERTENSION
     Dosage: [LOSARTAN POTASSIUM 100 MG]/ [HYDROCHLOROTHIAZIDE 25MG], 1X/DAY
     Route: 048
  3. ADALAT OROS [Concomitant]
     Indication: HYPERTENSION
     Dosage: 30 MG, 1X/DAY
     Route: 048

REACTIONS (3)
  - Respiratory arrest [Fatal]
  - Pneumonia [Recovered/Resolved]
  - Asthenia [Not Recovered/Not Resolved]
